FAERS Safety Report 4554679-4 (Version None)
Quarter: 2005Q1

REPORT INFORMATION
  Report Type: 
  Country: None (occurrence: None)
  Receive Date: 20050118
  Receipt Date: 20040114
  Transmission Date: 20050727
  Serious: Yes (Hospitalization, Other)
  Sender: FDA-Public Use
  Company Number: A0493500A

PATIENT
  Age: 53 Year
  Sex: Male

DRUGS (5)
  1. ECOTRIN [Suspect]
     Indication: HEADACHE
     Route: 048
  2. DEXATRIM [Suspect]
     Dates: start: 20010501, end: 20010611
  3. ALKA SELTZER PLUS COUGH + COLD [Suspect]
     Route: 048
     Dates: start: 20010611, end: 20010611
  4. GLAUCOMA MEDICATION (UNSPECIFIED) [Concomitant]
  5. CONTAC 12-HOUR COLD CAPLET [Concomitant]
     Dosage: 2CAPL PER DAY
     Route: 048
     Dates: start: 20010611, end: 20010611

REACTIONS (18)
  - AGITATION [None]
  - AMNESIA [None]
  - BLOOD PRESSURE INCREASED [None]
  - COMA [None]
  - DISORIENTATION [None]
  - DYSARTHRIA [None]
  - FEELING ABNORMAL [None]
  - HEADACHE [None]
  - HYDROCEPHALUS [None]
  - HYPERHIDROSIS [None]
  - HYPERTENSION [None]
  - MEMORY IMPAIRMENT [None]
  - MUSCLE TWITCHING [None]
  - NAUSEA [None]
  - NECK PAIN [None]
  - SUBARACHNOID HAEMORRHAGE [None]
  - TREMOR [None]
  - VOMITING [None]
